FAERS Safety Report 9302173 (Version 2)
Quarter: 2013Q2

REPORT INFORMATION
  Report Type: Spontaneous
  Country: US (occurrence: US)
  Receive Date: 20130522
  Receipt Date: 20130629
  Transmission Date: 20140414
  Serious: Yes (Hospitalization, Other)
  Sender: FDA-Public Use
  Company Number: US-B.I. PHARMACEUTICALS,INC./RIDGEFIELD-2013-BI-14097BP

PATIENT
  Age: 72 Year
  Sex: Female
  Weight: 68.04 kg

DRUGS (13)
  1. PRADAXA [Suspect]
     Indication: ANTICOAGULANT THERAPY
     Dosage: 300 MG
     Route: 048
     Dates: start: 20120306, end: 20120728
  2. PRADAXA [Suspect]
     Indication: ATRIAL FIBRILLATION
  3. LISINOPRIL [Concomitant]
     Dosage: 30 MG
  4. ALDACTONE [Concomitant]
     Dosage: 25 MG
  5. COMBIVENT [Concomitant]
  6. GABAPENTIN [Concomitant]
     Dosage: 100 MG
  7. TEKTURNA [Concomitant]
     Dosage: 150 MG
  8. PROTONIX [Concomitant]
     Dosage: 40 MG
  9. CALAN SR [Concomitant]
     Dosage: 360 MG
  10. CRESTOR [Concomitant]
     Dosage: 10 MG
  11. KLOR-CON [Concomitant]
     Dosage: 20 MEQ
  12. KEPPRA [Concomitant]
     Dosage: 1000 MG
  13. LASIX [Concomitant]
     Dosage: 80 MG

REACTIONS (4)
  - Upper gastrointestinal haemorrhage [Recovered/Resolved]
  - Renal failure [Unknown]
  - Anaemia [Unknown]
  - Coagulopathy [Unknown]
